FAERS Safety Report 12525074 (Version 1)
Quarter: 2016Q3

REPORT INFORMATION
  Report Type: Spontaneous
  Country: US (occurrence: US)
  Receive Date: 20160704
  Receipt Date: 20160704
  Transmission Date: 20161109
  Serious: Yes (Death, Hospitalization)
  Sender: FDA-Public Use
  Company Number: US-UNITED THERAPEUTICS-UNT-2016-008644

PATIENT
  Age: 77 Year
  Sex: Female
  Weight: 72.56 kg

DRUGS (2)
  1. TYVASO [Suspect]
     Active Substance: TREPROSTINIL
     Indication: PULMONARY HYPERTENSION
     Dosage: 54 ?G, QID
     Dates: start: 20140416
  2. TYVASO [Suspect]
     Active Substance: TREPROSTINIL
     Dosage: UNK

REACTIONS (3)
  - Thrombosis [Not Recovered/Not Resolved]
  - Urinary tract infection [Unknown]
  - Death [Fatal]

NARRATIVE: CASE EVENT DATE: 2016
